FAERS Safety Report 7984139-X (Version None)
Quarter: 2011Q4

REPORT INFORMATION
  Report Type: 
  Country: None (occurrence: None)
  Receive Date: 20111214
  Receipt Date: 20111130
  Transmission Date: 20120403
  Serious: Yes (Disabling, Other)
  Sender: FDA-Public Use
  Company Number: 2011P1013738

PATIENT
  Sex: Male

DRUGS (1)
  1. METOCLOPRAMIDE [Suspect]
     Dates: start: 20090228, end: 20091031

REACTIONS (8)
  - MOVEMENT DISORDER [None]
  - EXTRAPYRAMIDAL DISORDER [None]
  - EMOTIONAL DISTRESS [None]
  - ANHEDONIA [None]
  - ACTIVITIES OF DAILY LIVING IMPAIRED [None]
  - TARDIVE DYSKINESIA [None]
  - PAIN [None]
  - PSYCHOLOGICAL TRAUMA [None]
